FAERS Safety Report 12483685 (Version 1)
Quarter: 2016Q2

REPORT INFORMATION
  Report Type: Spontaneous
  Country: US (occurrence: None)
  Receive Date: 20160620
  Receipt Date: 20160620
  Transmission Date: 20160815
  Serious: Yes (Hospitalization)
  Sender: FDA-Public Use
  Company Number: None

PATIENT
  Age: 53 Year
  Sex: Male

DRUGS (1)
  1. VANCOMYCIN 1500MG [Suspect]
     Active Substance: VANCOMYCIN
     Indication: CELLULITIS
     Dosage: 1500MG EVERY 12 HOURS DIAL A FLOW
     Dates: start: 20160513, end: 20160519

REACTIONS (1)
  - Renal failure [None]

NARRATIVE: CASE EVENT DATE: 20160519
